FAERS Safety Report 14783567 (Version 4)
Quarter: 2018Q2

REPORT INFORMATION
  Report Type: Report from Study
  Country: US (occurrence: US)
  Receive Date: 20180420
  Receipt Date: 20180627
  Transmission Date: 20180711
  Serious: Yes (Other)
  Sender: FDA-Public Use
  Company Number: US-JNJFOC-20180424773

PATIENT
  Age: 85 Year
  Sex: Female

DRUGS (12)
  1. HYOSCYAMINE. [Concomitant]
     Active Substance: HYOSCYAMINE
  2. NYSTATIN. [Concomitant]
     Active Substance: NYSTATIN
  3. DULCOLAX NOS [Concomitant]
     Active Substance: BISACODYL OR DOCUSATE SODIUM
  4. IMBRUVICA [Suspect]
     Active Substance: IBRUTINIB
     Indication: WALDENSTROM^S MACROGLOBULINAEMIA
     Route: 048
     Dates: start: 20180511
  5. IMBRUVICA [Suspect]
     Active Substance: IBRUTINIB
     Indication: WALDENSTROM^S MACROGLOBULINAEMIA
     Route: 048
     Dates: start: 20180228
  6. NORVASC [Concomitant]
     Active Substance: AMLODIPINE BESYLATE
  7. MULTAQ [Concomitant]
     Active Substance: DRONEDARONE
  8. IMBRUVICA [Suspect]
     Active Substance: IBRUTINIB
     Indication: WALDENSTROM^S MACROGLOBULINAEMIA
     Route: 048
     Dates: start: 20180302, end: 20180507
  9. COREG [Concomitant]
     Active Substance: CARVEDILOL
  10. COUMADIN [Concomitant]
     Active Substance: WARFARIN SODIUM
  11. FLUTICASONE. [Concomitant]
     Active Substance: FLUTICASONE
  12. OSPHENA [Concomitant]
     Active Substance: OSPEMIFENE

REACTIONS (6)
  - Constipation [Recovering/Resolving]
  - Abdominal pain upper [Recovered/Resolved]
  - Incorrect dose administered [Unknown]
  - Brain neoplasm [Unknown]
  - Abdominal discomfort [Unknown]
  - Off label use [Unknown]

NARRATIVE: CASE EVENT DATE: 2018
